FAERS Safety Report 9775493 (Version 2)
Quarter: 2013Q4

REPORT INFORMATION
  Report Type: Spontaneous
  Country: IT (occurrence: IT)
  Receive Date: 20131220
  Receipt Date: 20131230
  Transmission Date: 20140711
  Serious: Yes (Hospitalization)
  Sender: FDA-Public Use
  Company Number: IT-TEVA-449458ISR

PATIENT
  Age: 28 Year
  Sex: Female

DRUGS (3)
  1. OLANZAPINE [Suspect]
     Route: 048
  2. DEPAKIN CHRONO 300MG [Suspect]
  3. RIVOTRIL 2.5 MG/ML [Suspect]

REACTIONS (2)
  - Coma [Unknown]
  - Drug abuse [Unknown]
